FAERS Safety Report 5070079-5 (Version None)
Quarter: 2006Q3

REPORT INFORMATION
  Report Type: 
  Country: None (occurrence: None)
  Receive Date: 20060803
  Receipt Date: 20060728
  Transmission Date: 20061208
  Serious: Yes (Death)
  Sender: FDA-Public Use
  Company Number: TR-BRISTOL-MYERS SQUIBB COMPANY-13462130

PATIENT
  Age: 14 Year
  Sex: Male

DRUGS (7)
  1. VINCRISTINE SULFATE [Suspect]
     Indication: NON-HODGKIN'S LYMPHOMA
  2. CYCLOPHOSPHAMIDE [Suspect]
     Indication: NON-HODGKIN'S LYMPHOMA
  3. METHOTREXATE [Suspect]
     Indication: NON-HODGKIN'S LYMPHOMA
  4. MERCAPTOPURINE [Suspect]
     Indication: NON-HODGKIN'S LYMPHOMA
  5. ADRIAMYCIN PFS [Suspect]
     Indication: NON-HODGKIN'S LYMPHOMA
  6. CYTARABINE [Suspect]
     Indication: NON-HODGKIN'S LYMPHOMA
  7. RADIATION THERAPY [Suspect]
     Indication: NON-HODGKIN'S LYMPHOMA

REACTIONS (2)
  - ACUTE LYMPHOCYTIC LEUKAEMIA [None]
  - TREATMENT RELATED SECONDARY MALIGNANCY [None]
